FAERS Safety Report 23849977 (Version 1)
Quarter: 2024Q2

REPORT INFORMATION
  Report Type: Spontaneous
  Country: CA (occurrence: None)
  Receive Date: 20240513
  Receipt Date: 20240513
  Transmission Date: 20240716
  Serious: Yes (Hospitalization)
  Sender: FDA-Public Use
  Company Number: 2024A111916

PATIENT
  Age: 79 Year
  Sex: Male
  Weight: 70 kg

DRUGS (9)
  1. BRILINTA [Suspect]
     Active Substance: TICAGRELOR
     Indication: Coronary arterial stent insertion
     Route: 048
  2. ASPIRIN [Suspect]
     Active Substance: ASPIRIN
     Indication: Coronary arterial stent insertion
     Dosage: 1 EVERY 1 DAYS
     Route: 048
  3. ATENOLOL [Concomitant]
     Active Substance: ATENOLOL
  4. CYANOCOBALAMIN [Concomitant]
     Active Substance: CYANOCOBALAMIN
  5. IRBESARTAN [Concomitant]
     Active Substance: IRBESARTAN
  6. MAGNESIUM OXIDE [Concomitant]
     Active Substance: MAGNESIUM OXIDE
  7. NITROGLYCERIN [Concomitant]
     Active Substance: NITROGLYCERIN
  8. PANTOPRAZOLE SODIUM [Concomitant]
     Active Substance: PANTOPRAZOLE SODIUM
  9. ROSUVASTATIN [Concomitant]
     Active Substance: ROSUVASTATIN

REACTIONS (3)
  - Colon cancer [Recovered/Resolved]
  - Hiatus hernia [Recovered/Resolved]
  - Large intestinal haemorrhage [Recovered/Resolved]
